FAERS Safety Report 10250745 (Version 1)
Quarter: 2014Q2

REPORT INFORMATION
  Report Type: Spontaneous
  Country: DE (occurrence: DE)
  Receive Date: 20140620
  Receipt Date: 20140620
  Transmission Date: 20141212
  Serious: Yes (Disabling)
  Sender: FDA-Public Use
  Company Number: DE-WATSON-2014-13007

PATIENT
  Age: 83 Year
  Sex: Female

DRUGS (8)
  1. MIRTAZAPINE (UNKNOWN) [Suspect]
     Indication: PRODUCT USED FOR UNKNOWN INDICATION
     Dosage: 15 MG, DAILY
     Route: 048
     Dates: start: 20140224, end: 20140306
  2. MIRTAZAPINE (UNKNOWN) [Suspect]
     Dosage: 30 MG, DAILY
     Route: 048
     Dates: start: 20140307, end: 20140318
  3. MIRTAZAPINE (UNKNOWN) [Suspect]
     Dosage: 45 MG, DAILY
     Route: 048
     Dates: start: 20140319, end: 20140325
  4. MIRTAZAPINE (UNKNOWN) [Suspect]
     Dosage: 15 MG, DAILY
     Route: 048
     Dates: start: 20140326
  5. TAVOR                              /00273201/ [Suspect]
     Indication: PRODUCT USED FOR UNKNOWN INDICATION
     Dosage: 1 MG, DAILY
     Route: 048
     Dates: start: 20140310, end: 20140311
  6. TAVOR                              /00273201/ [Suspect]
     Dosage: 1.5 MG, DAILY
     Route: 048
     Dates: start: 20140312
  7. VOCADO HCT [Suspect]
     Indication: PRODUCT USED FOR UNKNOWN INDICATION
     Dosage: 40 MG/10 MG/ 25 MG
     Route: 048
  8. METFORMIN [Concomitant]
     Indication: PRODUCT USED FOR UNKNOWN INDICATION
     Dosage: 2000 MG, DAILY
     Route: 048
     Dates: start: 2005

REACTIONS (2)
  - Circulatory collapse [Recovered/Resolved with Sequelae]
  - Syncope [Unknown]
